FAERS Safety Report 4842416-5 (Version None)
Quarter: 2005Q4

REPORT INFORMATION
  Report Type: 
  Country: None (occurrence: None)
  Receive Date: 20051201
  Receipt Date: 20051118
  Transmission Date: 20060501
  Serious: Yes (Other)
  Sender: FDA-Public Use
  Company Number: US-KINGPHARMUSA00001-K200501499

PATIENT
  Age: 81 Year
  Sex: Female

DRUGS (6)
  1. ALTACE [Suspect]
     Indication: CORONARY ARTERY DISEASE
     Dosage: 10 MG, QD
     Route: 048
     Dates: start: 20001107
  2. LOCOL [Suspect]
     Indication: HYPERLIPIDAEMIA
     Dosage: 80 MG, QD
     Route: 048
     Dates: start: 20031127, end: 20040101
  3. LOCOL [Suspect]
     Dosage: 80 MG, QD
     Route: 048
     Dates: start: 20040101, end: 20040516
  4. ASS RATIOPHARM [Suspect]
     Indication: CORONARY ARTERY DISEASE
     Dosage: 100 MG, QD
     Route: 048
     Dates: start: 19980421
  5. HYDROCHLOROTHIAZIDE [Suspect]
     Indication: HYPERTENSION
     Dosage: 25 MG, QD
     Route: 048
     Dates: start: 20020506, end: 20041026
  6. MONOSTENASE [Concomitant]
     Dosage: UNK, UNK
     Dates: start: 19990511

REACTIONS (8)
  - BLOOD POTASSIUM INCREASED [None]
  - DIARRHOEA [None]
  - GASTRIC CANCER [None]
  - NAUSEA [None]
  - RED BLOOD CELL COUNT INCREASED [None]
  - TREATMENT NONCOMPLIANCE [None]
  - VOMITING [None]
  - WEIGHT DECREASED [None]
